FAERS Safety Report 19423625 (Version 2)
Quarter: 2021Q3

REPORT INFORMATION
  Report Type: Report from Study
  Country: AR (occurrence: AR)
  Receive Date: 20210616
  Receipt Date: 20210715
  Transmission Date: 20211014
  Serious: Yes (Hospitalization)
  Sender: FDA-Public Use
  Company Number: PHHY2016AR028248

PATIENT
  Age: 47 Year
  Sex: Female

DRUGS (2)
  1. GILENYA [Suspect]
     Active Substance: FINGOLIMOD HYDROCHLORIDE
     Dosage: 0.5 MG, QD
     Route: 048
  2. GILENYA [Suspect]
     Active Substance: FINGOLIMOD HYDROCHLORIDE
     Indication: MULTIPLE SCLEROSIS
     Dosage: 1 OT, UNK
     Route: 065

REACTIONS (11)
  - Seizure [Recovering/Resolving]
  - Chest injury [Unknown]
  - Fatigue [Unknown]
  - Dizziness [Unknown]
  - Fear [Unknown]
  - Central nervous system lesion [Unknown]
  - Antibody test abnormal [Unknown]
  - Headache [Unknown]
  - Head injury [Unknown]
  - Malaise [Unknown]
  - Feeling abnormal [Unknown]

NARRATIVE: CASE EVENT DATE: 20210531
